FAERS Safety Report 5860550-8 (Version None)
Quarter: 2008Q3

REPORT INFORMATION
  Report Type: 
  Country: None (occurrence: None)
  Receive Date: 20080827
  Receipt Date: 20070910
  Transmission Date: 20090109
  Serious: No
  Sender: FDA-Public Use
  Company Number: US-ABBOTT-07P-163-0416450-00

PATIENT
  Sex: Male
  Weight: 73.548 kg

DRUGS (6)
  1. NIASPAN [Suspect]
     Indication: BLOOD CHOLESTEROL INCREASED
     Route: 048
     Dates: start: 20060101
  2. NIASPAN [Suspect]
     Route: 048
  3. NIASPAN [Suspect]
     Route: 048
     Dates: end: 20070801
  4. NIASPAN [Suspect]
     Route: 048
     Dates: start: 20070801
  5. ACETYLSALICYLIC ACID SRT [Concomitant]
     Indication: PROPHYLAXIS
     Route: 048
  6. ACETYLSALICYLIC ACID SRT [Concomitant]
     Indication: ADVERSE DRUG REACTION

REACTIONS (3)
  - FLUSHING [None]
  - HEART RATE INCREASED [None]
  - PRURITUS [None]
